FAERS Safety Report 9566075 (Version 3)
Quarter: 2013Q4

REPORT INFORMATION
  Report Type: Spontaneous
  Country: US (occurrence: US)
  Receive Date: 20130930
  Receipt Date: 20131031
  Transmission Date: 20140711
  Serious: Yes (Hospitalization, Other)
  Sender: FDA-Public Use
  Company Number: US-ALLERGAN-1314923US

PATIENT
  Age: 58 Year
  Sex: Female

DRUGS (20)
  1. BOTOX COSMETIC [Suspect]
     Indication: SKIN WRINKLING
     Dosage: 50 UNITS, SINGLE
     Route: 030
     Dates: start: 20130909, end: 20130909
  2. BOTOX COSMETIC [Suspect]
     Indication: SKIN WRINKLING
  3. BOTOX COSMETIC [Suspect]
     Indication: SKIN WRINKLING
  4. JUVEDERM ULTRA PLUS [Suspect]
     Indication: SKIN WRINKLING
     Dosage: 2 SYRINGES
     Route: 030
     Dates: start: 20130909, end: 20130909
  5. JUVEDERM ULTRA PLUS [Suspect]
     Dosage: 1 SYRINGE
     Route: 030
     Dates: start: 20130909, end: 20130909
  6. ECOTRIN [Concomitant]
     Indication: PRODUCT USED FOR UNKNOWN INDICATION
     Dosage: 325 MG, QD
     Route: 048
  7. PREMARIN [Concomitant]
     Indication: PRODUCT USED FOR UNKNOWN INDICATION
     Dosage: 1.25 MG, QD
  8. SOTALOL [Concomitant]
     Indication: PRODUCT USED FOR UNKNOWN INDICATION
     Dosage: 40 MG, QD
     Route: 048
  9. XANAX [Concomitant]
     Indication: PRODUCT USED FOR UNKNOWN INDICATION
     Dosage: 1 MG, QID
     Route: 048
  10. DILANTIN                           /00017401/ [Concomitant]
     Indication: PRODUCT USED FOR UNKNOWN INDICATION
     Dosage: 200 MG, QD
     Route: 048
  11. TRILIPIX [Concomitant]
     Indication: PRODUCT USED FOR UNKNOWN INDICATION
     Dosage: 130 MG, QD
     Route: 048
  12. LIPITOR [Concomitant]
     Indication: PRODUCT USED FOR UNKNOWN INDICATION
     Dosage: 40 MG, QD
     Route: 048
  13. NEXIUM                             /01479302/ [Concomitant]
     Indication: PRODUCT USED FOR UNKNOWN INDICATION
     Dosage: 40 UNITS, QD
     Route: 048
  14. LORTAB                             /00607101/ [Concomitant]
     Indication: PAIN
     Dosage: 500 MG, PRN
     Route: 048
  15. LASIX                              /00032601/ [Concomitant]
     Indication: PRODUCT USED FOR UNKNOWN INDICATION
     Dosage: 40 MG, QD
     Route: 048
  16. POTASSIUM ER [Concomitant]
     Indication: PRODUCT USED FOR UNKNOWN INDICATION
     Dosage: 20 MEQ, UNK
     Route: 048
  17. SYNTHROID [Concomitant]
     Indication: PRODUCT USED FOR UNKNOWN INDICATION
     Dosage: 50 MG, QOD
     Route: 048
  18. SYNTHROID [Concomitant]
     Dosage: 25 MG, QOD
     Route: 048
  19. XOPENEX [Concomitant]
     Indication: PRODUCT USED FOR UNKNOWN INDICATION
     Dosage: 45 ?G, PRN
  20. SPIRIVA [Concomitant]
     Indication: PRODUCT USED FOR UNKNOWN INDICATION
     Dosage: UNK UNK, QAM
     Route: 065

REACTIONS (12)
  - Throat tightness [Unknown]
  - Obstructive airways disorder [Unknown]
  - Anaphylactic shock [Unknown]
  - Lip swelling [Not Recovered/Not Resolved]
  - Eye swelling [Unknown]
  - Eye swelling [Unknown]
  - Swelling face [Unknown]
  - Dyspnoea [Unknown]
  - Dysphagia [Unknown]
  - Visual impairment [Unknown]
  - Photophobia [Unknown]
  - Wrong technique in drug usage process [Unknown]
